FAERS Safety Report 5093343-2 (Version None)
Quarter: 2006Q3

REPORT INFORMATION
  Report Type: 
  Country: None (occurrence: None)
  Receive Date: 20060828
  Receipt Date: 20060816
  Transmission Date: 20061208
  Serious: Yes (Other)
  Sender: FDA-Public Use
  Company Number: 2006100902

PATIENT
  Sex: Female

DRUGS (1)
  1. ACCUPRIL [Suspect]
     Indication: HYPERTENSION
     Dosage: ORAL
     Route: 048
     Dates: start: 19980101

REACTIONS (4)
  - FATIGUE [None]
  - GASTRIC DISORDER [None]
  - MALAISE [None]
  - RENAL CYST [None]
